FAERS Safety Report 25835303 (Version 1)
Quarter: 2025Q3

REPORT INFORMATION
  Report Type: Spontaneous
  Country: US (occurrence: US)
  Receive Date: 20250923
  Receipt Date: 20250923
  Transmission Date: 20251020
  Serious: Yes (Hospitalization)
  Sender: FENNEC PHARMACEUTICALS
  Company Number: US-FENNEC PHARMACEUTICALS, INC.-2025FEN00082

PATIENT
  Age: 40 Year
  Sex: Male

DRUGS (5)
  1. PEDMARK [Suspect]
     Active Substance: SODIUM THIOSULFATE
     Route: 042
     Dates: start: 20250804, end: 202508
  2. PEDMARK [Suspect]
     Active Substance: SODIUM THIOSULFATE
     Route: 042
     Dates: start: 20250825, end: 20250829
  3. UNSPECIFIED INGREDIENT [Suspect]
     Active Substance: UNSPECIFIED INGREDIENT
  4. PROCHLORPERAZINE [Concomitant]
     Active Substance: PROCHLORPERAZINE
     Route: 042
  5. PROCHLORPERAZINE [Concomitant]
     Active Substance: PROCHLORPERAZINE
     Route: 048

REACTIONS (21)
  - Influenza [Unknown]
  - White blood cell count decreased [Unknown]
  - Chills [Unknown]
  - Sneezing [Unknown]
  - Lethargy [Unknown]
  - Balance disorder [Recovered/Resolved]
  - Constipation [Recovered/Resolved]
  - Fatigue [Unknown]
  - Asthenia [Unknown]
  - Dry mouth [Unknown]
  - Oral candidiasis [Unknown]
  - Abnormal weight gain [Unknown]
  - Tinnitus [Unknown]
  - Abdominal pain [Unknown]
  - Abdominal distension [Unknown]
  - Hiccups [Unknown]
  - Nausea [Unknown]
  - Vomiting [Unknown]
  - Pyrexia [Unknown]
  - Blood pressure diastolic increased [Unknown]
  - Off label use [Not Recovered/Not Resolved]

NARRATIVE: CASE EVENT DATE: 20250801
